FAERS Safety Report 9311032 (Version 1)
Quarter: 2013Q2

REPORT INFORMATION
  Report Type: Spontaneous
  Country: BR (occurrence: BR)
  Receive Date: 20130528
  Receipt Date: 20130528
  Transmission Date: 20140414
  Serious: Yes (Hospitalization)
  Sender: FDA-Public Use
  Company Number: BR-JNJFOC-20130513465

PATIENT
  Sex: Female

DRUGS (4)
  1. REMICADE [Suspect]
     Indication: CROHN^S DISEASE
     Dosage: DOSE: 3 AMPOULES
     Route: 042
     Dates: start: 201208
  2. REMICADE [Suspect]
     Indication: CROHN^S DISEASE
     Dosage: DOSE: 3 AMPOULES
     Route: 042
     Dates: start: 20130520
  3. REMICADE [Suspect]
     Indication: COLITIS ULCERATIVE
     Dosage: DOSE: 3 AMPOULES
     Route: 042
     Dates: start: 201208
  4. REMICADE [Suspect]
     Indication: COLITIS ULCERATIVE
     Dosage: DOSE: 3 AMPOULES
     Route: 042
     Dates: start: 20130520

REACTIONS (3)
  - Asthenia [Not Recovered/Not Resolved]
  - Diarrhoea [Unknown]
  - Abdominal pain [Unknown]
